FAERS Safety Report 7708662-8 (Version None)
Quarter: 2011Q3

REPORT INFORMATION
  Report Type: 
  Country: None (occurrence: None)
  Receive Date: 20110824
  Receipt Date: 20110824
  Transmission Date: 20111222
  Serious: Yes (Death)
  Sender: FDA-Public Use
  Company Number: None

PATIENT
  Age: 58 Year
  Sex: Male

DRUGS (5)
  1. VORINOSTAT / MERCK [Suspect]
     Indication: METASTASES TO CENTRAL NERVOUS SYSTEM
     Dosage: 400MG, QD, PO
     Route: 048
     Dates: start: 20110623, end: 20110715
  2. ROXANOL [Concomitant]
  3. HALDOL [Concomitant]
  4. MORPHINE [Concomitant]
  5. PHENERGAN SUPPOSITORY [Concomitant]

REACTIONS (1)
  - DEATH [None]
